FAERS Safety Report 7673815-4 (Version None)
Quarter: 2011Q3

REPORT INFORMATION
  Report Type: 
  Country: None (occurrence: None)
  Receive Date: 20110810
  Receipt Date: 20110726
  Transmission Date: 20111222
  Serious: Yes (Hospitalization, Other)
  Sender: FDA-Public Use
  Company Number: PHHY2011DE68283

PATIENT
  Sex: Male
  Weight: 73 kg

DRUGS (12)
  1. RASILEZ [Suspect]
     Indication: HYPERTENSION
     Dosage: 150 MG, UNK
     Route: 048
     Dates: end: 20100201
  2. PLATELETS [Concomitant]
     Dosage: UNK UKN, UNK
     Route: 048
  3. HYDROCHLOROTHIAZIDE [Suspect]
     Dosage: 12.5 MG, UNK
     Route: 048
     Dates: start: 20090101, end: 20091212
  4. RAMIPRIL [Concomitant]
     Indication: HYPERTENSION
     Dosage: UNK UKN, UNK
     Dates: start: 20100901
  5. BETA BLOCKING AGENTS [Concomitant]
     Dosage: UNK UKN, UNK
     Route: 048
     Dates: end: 20091117
  6. CALCIUM CHANNEL BLOCKERS [Concomitant]
     Dosage: UNK UKN, UNK
     Route: 048
     Dates: end: 20091117
  7. DIURETICS [Concomitant]
     Dosage: UNK UKN, UNK
     Route: 048
  8. ANGIOTENSIN II ANTAGONISTS [Concomitant]
     Dosage: UNK UKN, UNK
     Route: 048
     Dates: end: 20110201
  9. AMLODIPINE [Concomitant]
     Dosage: 5 MG, UNK
     Route: 048
     Dates: start: 20080901
  10. ASPIRIN [Concomitant]
     Indication: HAEMODILUTION
     Dosage: 100 MG, UNK
     Route: 048
     Dates: start: 20090201
  11. ACE INHIBITORS [Concomitant]
     Dosage: UNK UKN, UNK
     Route: 048
     Dates: start: 20110202
  12. SIMVASTATIN [Concomitant]
     Dosage: 10 MG, UNK
     Route: 048
     Dates: start: 20090101

REACTIONS (3)
  - DYSPNOEA [None]
  - ANGINA PECTORIS [None]
  - MYOCARDIAL ISCHAEMIA [None]
